FAERS Safety Report 9579613 (Version 2)
Quarter: 2013Q4

REPORT INFORMATION
  Report Type: Report from Study
  Country: US (occurrence: US)
  Receive Date: 20131002
  Receipt Date: 20131031
  Transmission Date: 20140711
  Serious: Yes (Death)
  Sender: FDA-Public Use
  Company Number: US-ROCHE-1283753

PATIENT
  Age: 61 Year
  Sex: Male

DRUGS (5)
  1. AVASTIN [Suspect]
     Indication: COLON CANCER
     Route: 065
  2. CAMPTOSAR [Concomitant]
     Indication: COLON CANCER
     Route: 042
     Dates: start: 20130924, end: 20130924
  3. 5-FU [Concomitant]
     Indication: COLON CANCER
     Route: 042
     Dates: start: 20130924, end: 20130926
  4. OXALIPLATIN [Concomitant]
     Indication: COLON CANCER
     Route: 042
  5. FOLINIC ACID [Concomitant]
     Route: 065
     Dates: start: 20130924

REACTIONS (1)
  - Cardiac arrest [Fatal]
